FAERS Safety Report 25440198 (Version 1)
Quarter: 2025Q2

REPORT INFORMATION
  Report Type: Spontaneous
  Country: US (occurrence: US)
  Receive Date: 20250616
  Receipt Date: 20250616
  Transmission Date: 20250716
  Serious: No
  Sender: LUNDBECK
  Company Number: US-LUNDBECK-DKLU4015550

PATIENT
  Age: 43 Year
  Sex: Female

DRUGS (1)
  1. VYEPTI [Suspect]
     Active Substance: EPTINEZUMAB-JJMR
     Indication: Migraine
     Dosage: 100 MILLIGRAM
     Route: 041
     Dates: start: 20250604, end: 20250604

REACTIONS (3)
  - Fatigue [Recovered/Resolved]
  - Somnolence [Recovered/Resolved]
  - Pruritus [Recovered/Resolved]
